FAERS Safety Report 17359956 (Version 3)
Quarter: 2020Q3

REPORT INFORMATION
  Report Type: Spontaneous
  Country: US (occurrence: US)
  Receive Date: 20200203
  Receipt Date: 20200925
  Transmission Date: 20201102
  Serious: Yes (Hospitalization, Other)
  Sender: FDA-Public Use
  Company Number: US-GILEAD-2020-0448795

PATIENT
  Sex: Male
  Weight: 99.77 kg

DRUGS (142)
  1. RENVELA [Concomitant]
     Active Substance: SEVELAMER CARBONATE
  2. ALBUTEROL [SALBUTAMOL] [Concomitant]
     Active Substance: ALBUTEROL
     Indication: ASTHMA
  3. ALTEPLASE. [Concomitant]
     Active Substance: ALTEPLASE
     Indication: ISCHAEMIC STROKE
  4. BUDESONIDE. [Concomitant]
     Active Substance: BUDESONIDE
  5. BUDESONIDE;FORMOTEROL [Concomitant]
     Active Substance: BUDESONIDE\FORMOTEROL
  6. ETRAVIRINE [Concomitant]
     Active Substance: ETRAVIRINE
  7. HYDROXYZINE [Concomitant]
     Active Substance: HYDROXYZINE HYDROCHLORIDE
  8. IOHEXOL [Concomitant]
     Active Substance: IOHEXOL
  9. OMNIPAQUE [Concomitant]
     Active Substance: IOHEXOL
  10. LOPERAMIDE [Concomitant]
     Active Substance: LOPERAMIDE
  11. METOCLOPRAMIDE. [Concomitant]
     Active Substance: METOCLOPRAMIDE
  12. NICARDIPINE [Concomitant]
     Active Substance: NICARDIPINE
  13. OCTREOTIDE. [Concomitant]
     Active Substance: OCTREOTIDE
     Indication: DIARRHOEA
  14. TRIAMCINOLONE [Concomitant]
     Active Substance: TRIAMCINOLONE
  15. TRUVADA [Suspect]
     Active Substance: EMTRICITABINE\TENOFOVIR DISOPROXIL FUMARATE
     Dosage: UNK
     Route: 048
     Dates: start: 20070326, end: 20090312
  16. ABACAVIR. [Concomitant]
     Active Substance: ABACAVIR
  17. ALBUMIN [Concomitant]
     Active Substance: ALBUMIN HUMAN
  18. ASCORBIC ACID. [Concomitant]
     Active Substance: ASCORBIC ACID
     Indication: HYPOVITAMINOSIS
  19. BISACODYL. [Concomitant]
     Active Substance: BISACODYL
     Indication: CONSTIPATION
  20. CHLORPROMAZINE. [Concomitant]
     Active Substance: CHLORPROMAZINE
     Indication: ANXIETY
  21. DARBEPOETIN ALFA [Concomitant]
     Active Substance: DARBEPOETIN ALFA
  22. DEXTROSE. [Concomitant]
     Active Substance: DEXTROSE
     Indication: BLOOD GLUCOSE DECREASED
  23. DIATRIZOATE [Concomitant]
     Active Substance: DIATRIZOATE MEGLUMINE
  24. DOLUTEGRAVIR [Concomitant]
     Active Substance: DOLUTEGRAVIR
  25. DOXYCYCLINE. [Concomitant]
     Active Substance: DOXYCYCLINE
  26. ESOMEPRAZOLE. [Concomitant]
     Active Substance: ESOMEPRAZOLE MAGNESIUM
     Indication: GASTROOESOPHAGEAL REFLUX DISEASE
  27. EZETIMIBE. [Concomitant]
     Active Substance: EZETIMIBE
  28. IPRATROPIUM [Concomitant]
     Active Substance: IPRATROPIUM
  29. LAMIVUDINE. [Concomitant]
     Active Substance: LAMIVUDINE
  30. LEVOFLOXACIN. [Concomitant]
     Active Substance: LEVOFLOXACIN
  31. NORVIR [Concomitant]
     Active Substance: RITONAVIR
  32. NISTATIN [Concomitant]
     Active Substance: NYSTATIN
  33. POTASSIUM CHLORIDE. [Concomitant]
     Active Substance: POTASSIUM CHLORIDE
  34. PRAVASTATIN. [Concomitant]
     Active Substance: PRAVASTATIN
  35. PROPOFOL. [Concomitant]
     Active Substance: PROPOFOL
  36. ROCURONIUM [Concomitant]
     Active Substance: ROCURONIUM BROMIDE
  37. SEVELAMER CARBONATE. [Concomitant]
     Active Substance: SEVELAMER CARBONATE
  38. ACETAMINOFEN [Concomitant]
     Active Substance: ACETAMINOPHEN
  39. BACLOFEN. [Concomitant]
     Active Substance: BACLOFEN
  40. CARVEDILOL. [Concomitant]
     Active Substance: CARVEDILOL
     Indication: HYPERTENSION
  41. CEFEPIME [Concomitant]
     Active Substance: CEFEPIME HYDROCHLORIDE
  42. CLINDAMYCIN. [Concomitant]
     Active Substance: CLINDAMYCIN
  43. DARUNAVIR [Concomitant]
     Active Substance: DARUNAVIR
  44. DORNASE ALFA. [Concomitant]
     Active Substance: DORNASE ALFA
  45. FERROUS SULFATE. [Concomitant]
     Active Substance: FERROUS SULFATE
     Indication: ANAEMIA
  46. ADVAIR HFA [Concomitant]
     Active Substance: FLUTICASONE PROPIONATE\SALMETEROL XINAFOATE
  47. FOSAMPRENAVIR [Concomitant]
     Active Substance: FOSAMPRENAVIR
  48. GLIPIZIDE. [Concomitant]
     Active Substance: GLIPIZIDE
  49. HEPARIN [Concomitant]
     Active Substance: HEPARIN SODIUM
  50. HYDROCODONE [Concomitant]
     Active Substance: HYDROCODONE
  51. OSELTAMIVIR [Concomitant]
     Active Substance: OSELTAMIVIR
     Indication: INFLUENZA
  52. POLYETHYLENE GLYCOL 3350. [Concomitant]
     Active Substance: POLYETHYLENE GLYCOL 3350
  53. SODIUM CITRATE. [Concomitant]
     Active Substance: SODIUM CITRATE
  54. SODIUM POLYSTYRENE SULFONATE. [Concomitant]
     Active Substance: SODIUM POLYSTYRENE SULFONATE
  55. SUSTIVA [Concomitant]
     Active Substance: EFAVIRENZ
  56. PREDNISONE. [Concomitant]
     Active Substance: PREDNISONE
  57. INSULIN [Concomitant]
     Active Substance: INSULIN NOS
  58. BENZOCAINE. [Concomitant]
     Active Substance: BENZOCAINE
  59. CEFTRIAXONE. [Concomitant]
     Active Substance: CEFTRIAXONE
  60. CHLORPROMAZINE. [Concomitant]
     Active Substance: CHLORPROMAZINE
     Indication: VOMITING
  61. CIPROFLOXACIN. [Concomitant]
     Active Substance: CIPROFLOXACIN
  62. CLOPIDOGREL [Concomitant]
     Active Substance: CLOPIDOGREL BISULFATE
  63. DOCUSATE SODIUM. [Concomitant]
     Active Substance: DOCUSATE SODIUM
  64. EPIVIR [Concomitant]
     Active Substance: LAMIVUDINE
  65. FENTANIL [Concomitant]
     Active Substance: FENTANYL
  66. HYDRALAZINE [Concomitant]
     Active Substance: HYDRALAZINE HYDROCHLORIDE
  67. IPRATROPIUM BROMIDE. [Concomitant]
     Active Substance: IPRATROPIUM BROMIDE
  68. ISOSORBIDE DINITRATE. [Concomitant]
     Active Substance: ISOSORBIDE DINITRATE
  69. LEXIVA [Concomitant]
     Active Substance: FOSAMPRENAVIR CALCIUM
  70. MAGNESIUM SULFATE. [Concomitant]
     Active Substance: MAGNESIUM SULFATE
  71. MANITOL [Concomitant]
     Active Substance: MANNITOL
  72. MINOXIDIL. [Concomitant]
     Active Substance: MINOXIDIL
  73. PROSCAR [Concomitant]
     Active Substance: FINASTERIDE
  74. SIMETHICONE (DIMETHICONE) [Concomitant]
     Active Substance: DIMETHICONE
  75. SULAR [Concomitant]
     Active Substance: NISOLDIPINE
  76. ZIDOVUDINE. [Concomitant]
     Active Substance: ZIDOVUDINE
  77. ZINC SULFATE. [Concomitant]
     Active Substance: ZINC SULFATE
  78. ZITHROMAX [Concomitant]
     Active Substance: AZITHROMYCIN DIHYDRATE
  79. TRUVADA [Suspect]
     Active Substance: EMTRICITABINE\TENOFOVIR DISOPROXIL FUMARATE
     Indication: HIV INFECTION
     Dosage: UNK
     Route: 048
     Dates: start: 2004
  80. AMPHOTERICIN B, LIPOSOME [Concomitant]
     Active Substance: AMPHOTERICIN B
  81. INTELENCE [Concomitant]
     Active Substance: ETRAVIRINE
  82. TIVICAY [Concomitant]
     Active Substance: DOLUTEGRAVIR SODIUM
  83. AMIODARONE [Concomitant]
     Active Substance: AMIODARONE
     Indication: HEART RATE IRREGULAR
  84. MEPRON [Concomitant]
     Active Substance: ATOVAQUONE
     Indication: PNEUMONIA
  85. ATORVASTATIN [Concomitant]
     Active Substance: ATORVASTATIN
     Indication: BLOOD CHOLESTEROL INCREASED
  86. CALCIUM CARBONATE. [Concomitant]
     Active Substance: CALCIUM CARBONATE
  87. CHLORHEXIDINE GLUCONATE. [Concomitant]
     Active Substance: CHLORHEXIDINE GLUCONATE
  88. DAPSONE. [Concomitant]
     Active Substance: DAPSONE
  89. DAPTOMYCIN. [Concomitant]
     Active Substance: DAPTOMYCIN
  90. DIPHENHYDRAMINE. [Concomitant]
     Active Substance: DIPHENHYDRAMINE
  91. ERGOCALCIFEROL. [Concomitant]
     Active Substance: ERGOCALCIFEROL
  92. FLUCONAZOLE. [Concomitant]
     Active Substance: FLUCONAZOLE
  93. GABAPENTIN. [Concomitant]
     Active Substance: GABAPENTIN
  94. ITRACONAZOLE. [Concomitant]
     Active Substance: ITRACONAZOLE
  95. LANSOPRAZOLE. [Concomitant]
     Active Substance: LANSOPRAZOLE
  96. METOPROLOL. [Concomitant]
     Active Substance: METOPROLOL
  97. NOVASOURCE RENAL [Concomitant]
  98. PROMETHAZINE [Concomitant]
     Active Substance: PROMETHAZINE HYDROCHLORIDE
  99. RALTEGRAVIR. [Concomitant]
     Active Substance: RALTEGRAVIR
  100. SMZ?TMP [Concomitant]
     Active Substance: SULFAMETHOXAZOLE\TRIMETHOPRIM
  101. CISATRACURIUM. [Concomitant]
     Active Substance: CISATRACURIUM
  102. ENOXAPARIN [Concomitant]
     Active Substance: ENOXAPARIN
  103. FAMOTIDINE. [Concomitant]
     Active Substance: FAMOTIDINE
  104. INSULIN DETEMIR [Concomitant]
     Active Substance: INSULIN DETEMIR
  105. INSULIN REGULAR [INSULIN BOVINE] [Concomitant]
     Active Substance: INSULIN BEEF
  106. LACTATED RINGERS SOLUTION [Concomitant]
     Active Substance: CALCIUM CHLORIDE\POTASSIUM CHLORIDE\SODIUM CHLORIDE\SODIUM LACTATE
  107. LINEZOLID. [Concomitant]
     Active Substance: LINEZOLID
  108. NALOXONE [Concomitant]
     Active Substance: NALOXONE
  109. NOREPINEPHRINE. [Concomitant]
     Active Substance: NOREPINEPHRINE
  110. PLENDIL [Concomitant]
     Active Substance: FELODIPINE
  111. SODIUM BICARBONATE. [Concomitant]
     Active Substance: SODIUM BICARBONATE
  112. TIOTROPIUM [Concomitant]
     Active Substance: TIOTROPIUM
  113. VANCOMYCIN [Concomitant]
     Active Substance: VANCOMYCIN
  114. CLONIDINE. [Concomitant]
     Active Substance: CLONIDINE
  115. ASPIRIN [ACETYLSALICYLIC ACID] [Concomitant]
     Active Substance: ASPIRIN
     Indication: PAIN
  116. AZITHROMYCIN ANHYDROUS. [Concomitant]
     Active Substance: AZITHROMYCIN ANHYDROUS
     Indication: BACTERIAL INFECTION
  117. BENZONATATE. [Concomitant]
     Active Substance: BENZONATATE
  118. DOGOXINE [Concomitant]
     Indication: CARDIAC FAILURE
  119. ETOMIDATE. [Concomitant]
     Active Substance: ETOMIDATE
  120. GLYBURIDE. [Concomitant]
     Active Substance: GLYBURIDE
  121. LEVOTHYROXINE. [Concomitant]
     Active Substance: LEVOTHYROXINE
  122. METRONIDAZOLE. [Concomitant]
     Active Substance: METRONIDAZOLE
  123. NEXIUM I.V. [Concomitant]
     Active Substance: ESOMEPRAZOLE SODIUM
  124. NISOLDIPINE. [Concomitant]
     Active Substance: NISOLDIPINE
  125. OMEPRAZOLE. [Concomitant]
     Active Substance: OMEPRAZOLE
  126. POTASSIUM [Concomitant]
     Active Substance: POTASSIUM
  127. RITONAVIR. [Concomitant]
     Active Substance: RITONAVIR
  128. SIMVASTATIN. [Concomitant]
     Active Substance: SIMVASTATIN
  129. SULFAMETHOXAZOLE [Concomitant]
     Active Substance: SULFAMETHOXAZOLE
  130. VASOPRESSIN. [Concomitant]
     Active Substance: VASOPRESSIN
  131. ZIAGEN [Concomitant]
     Active Substance: ABACAVIR SULFATE
  132. CALCIUM [Concomitant]
     Active Substance: CALCIUM
     Dosage: UNK
     Dates: start: 20110526, end: 20171026
  133. FUROSEMIDE. [Concomitant]
     Active Substance: FUROSEMIDE
     Dosage: UNK
     Dates: start: 20120309, end: 20191202
  134. EFAVIRENZ. [Concomitant]
     Active Substance: EFAVIRENZ
  135. GLUCAGON. [Concomitant]
     Active Substance: GLUCAGON
  136. GOLYTELY [Concomitant]
     Active Substance: POLYETHYLENE GLYCOL 3350\POTASSIUM CHLORIDE\SODIUM BICARBONATE\SODIUM CHLORIDE\SODIUM SULFATE ANHYDROUS
  137. HYDROCHLOROTHIAZIDE. [Concomitant]
     Active Substance: HYDROCHLOROTHIAZIDE
  138. LISINOPRIL. [Concomitant]
     Active Substance: LISINOPRIL
  139. MIDAZOLAM. [Concomitant]
     Active Substance: MIDAZOLAM
  140. SODIUM CHLORIDE. [Concomitant]
     Active Substance: SODIUM CHLORIDE
  141. TRAMADOL. [Concomitant]
     Active Substance: TRAMADOL
  142. WARFARIN [Concomitant]
     Active Substance: WARFARIN

REACTIONS (7)
  - Emotional distress [Not Recovered/Not Resolved]
  - Renal failure [Unknown]
  - Chronic kidney disease [Not Recovered/Not Resolved]
  - Anhedonia [Not Recovered/Not Resolved]
  - Pain [Not Recovered/Not Resolved]
  - Anxiety [Not Recovered/Not Resolved]
  - Economic problem [Not Recovered/Not Resolved]

NARRATIVE: CASE EVENT DATE: 2009
